FAERS Safety Report 5037894-5 (Version None)
Quarter: 2006Q2

REPORT INFORMATION
  Report Type: 
  Country: None (occurrence: None)
  Receive Date: 20060628
  Receipt Date: 20060612
  Transmission Date: 20061013
  Serious: Yes (Life-Threatening, Other)
  Sender: FDA-Public Use
  Company Number: JP-ABBOTT-06P-087-0335737-00

PATIENT
  Sex: Male
  Weight: 58 kg

DRUGS (15)
  1. SEVOFRANE LIQUID FOR INHALATION [Suspect]
     Indication: MAINTENANCE OF ANAESTHESIA
     Route: 055
     Dates: start: 20051018, end: 20051018
  2. FENTANYL [Suspect]
     Indication: INDUCTION OF ANAESTHESIA
     Route: 042
     Dates: start: 20051018, end: 20051018
  3. FENTANYL [Suspect]
     Indication: MAINTENANCE OF ANAESTHESIA
     Route: 042
     Dates: start: 20051018, end: 20051018
  4. FENTANYL [Suspect]
     Indication: ANALGESIC THERAPY
  5. MIDAZOLAM [Concomitant]
     Indication: INDUCTION OF ANAESTHESIA
     Route: 042
     Dates: start: 20051018, end: 20051018
  6. VECURONIUM BROMIDE [Concomitant]
     Indication: HYPOTONIA
     Route: 042
     Dates: start: 20051018, end: 20051018
  7. VECURONIUM BROMIDE [Concomitant]
     Indication: MAINTENANCE OF ANAESTHESIA
     Route: 042
     Dates: start: 20051018, end: 20051018
  8. PROPOFOL [Concomitant]
     Indication: MAINTENANCE OF ANAESTHESIA
     Route: 042
     Dates: start: 20051018, end: 20051018
  9. GLYCERYL TRINITRATE [Concomitant]
     Indication: CORONARY ARTERY DILATATION
     Route: 042
     Dates: start: 20051018, end: 20051018
  10. LANDIOLOL HYDROCHLORIDE [Concomitant]
     Indication: TACHYCARDIA
     Route: 042
     Dates: start: 20051018, end: 20051018
  11. EPHEDRINE HYDROCHLORIDE [Concomitant]
     Indication: DRUG USE FOR UNKNOWN INDICATION
     Route: 042
     Dates: start: 20051018, end: 20051018
  12. NICARDIPINE HYDROCHLORIDE [Concomitant]
     Indication: DRUG USE FOR UNKNOWN INDICATION
     Route: 042
     Dates: start: 20051018, end: 20051018
  13. DILTIAZEM HYDROCHLORIDE [Concomitant]
     Indication: DRUG USE FOR UNKNOWN INDICATION
     Route: 042
     Dates: start: 20051018, end: 20051018
  14. HEPARIN SODIUM [Concomitant]
     Indication: DRUG USE FOR UNKNOWN INDICATION
     Route: 042
     Dates: start: 20051018, end: 20051018
  15. PROTAMINE SULFATE [Concomitant]
     Indication: DRUG USE FOR UNKNOWN INDICATION
     Route: 042
     Dates: start: 20051018, end: 20051018

REACTIONS (2)
  - BLOOD CREATINE PHOSPHOKINASE INCREASED [None]
  - CHILLS [None]
